FAERS Safety Report 20239092 (Version 3)
Quarter: 2022Q1

REPORT INFORMATION
  Report Type: Report from Study
  Country: US (occurrence: US)
  Receive Date: 20211228
  Receipt Date: 20220111
  Transmission Date: 20220423
  Serious: Yes (Death, Life-Threatening, Hospitalization)
  Sender: FDA-Public Use
  Company Number: US-PFIZER INC-202101837191

PATIENT
  Age: 14 Year
  Sex: Female

DRUGS (13)
  1. INOTUZUMAB OZOGAMICIN [Suspect]
     Active Substance: INOTUZUMAB OZOGAMICIN
     Indication: B-cell type acute leukaemia
     Dosage: 1.8 MG, 3 DOSES GIVEN ON 24NOV2021, 01DEC2021, AND 08DEC2021 (50 ML/HOUR)
     Route: 042
     Dates: start: 20211124, end: 20211208
  2. METHOTREXATE SODIUM [Suspect]
     Active Substance: METHOTREXATE SODIUM
     Indication: B-cell type acute leukaemia
     Dosage: 15 MG, TWICE DURING INDUCTION; 4 TIMES DURING CONSOLIDATION
     Route: 042
     Dates: start: 202107
  3. METHOTREXATE SODIUM [Suspect]
     Active Substance: METHOTREXATE SODIUM
     Dosage: 15 MG
     Dates: start: 20211124, end: 20211124
  4. CYTARABINE [Suspect]
     Active Substance: CYTARABINE
     Indication: B-cell type acute leukaemia
     Dosage: 70 MG ON DAY 1 (INDUCTION)
     Route: 037
     Dates: start: 20210709
  5. CYTARABINE [Suspect]
     Active Substance: CYTARABINE
     Dosage: 40 MG, ON DAYS 4, 11, 15 (INDUCTION)
     Route: 037
     Dates: start: 202107
  6. CYTARABINE [Suspect]
     Active Substance: CYTARABINE
     Dosage: 118 MG, DAYS 1-4, 8-11, 29-32, 36-39 (CONSOLIDATION)
     Route: 042
     Dates: end: 202112
  7. VINCRISTINE SULFATE [Suspect]
     Active Substance: VINCRISTINE SULFATE
     Indication: B-cell type acute leukaemia
     Dosage: 2 MG, DAYS 1, 8,15,22 (INDUCTION)
     Route: 042
     Dates: start: 20210709
  8. VINCRISTINE SULFATE [Suspect]
     Active Substance: VINCRISTINE SULFATE
     Dosage: 2 MG,  DAYS 15, 43, 50 (CONSOLIDATION)
     Route: 042
     Dates: end: 202112
  9. DAUNORUBICIN [Suspect]
     Active Substance: DAUNORUBICIN
     Indication: B-cell type acute leukaemia
     Dosage: 40 MG, 4 TIMES
     Route: 042
     Dates: start: 202107, end: 202112
  10. ONCASPAR [Suspect]
     Active Substance: PEGASPARGASE
     Indication: B-cell type acute leukaemia
     Dosage: 3975 IU, INDUCTION
     Route: 042
     Dates: start: 20210713, end: 20210713
  11. ONCASPAR [Suspect]
     Active Substance: PEGASPARGASE
     Dosage: 3922.5 IU, CONSOLIDATION
     Route: 042
     Dates: start: 20210908, end: 20211013
  12. CYCLOPHOSPHAMIDE [Suspect]
     Active Substance: CYCLOPHOSPHAMIDE
     Indication: B-cell type acute leukaemia
     Dosage: 1570 MG, TWICE
     Route: 042
     Dates: start: 202107, end: 202112
  13. MERCAPTOPURINE [Suspect]
     Active Substance: MERCAPTOPURINE
     Indication: B-cell type acute leukaemia
     Dosage: 650 MG/WEEK
     Route: 042
     Dates: start: 202107, end: 202112

REACTIONS (3)
  - Disseminated intravascular coagulation [Fatal]
  - Second primary malignancy [Not Recovered/Not Resolved]
  - Acute myeloid leukaemia [Not Recovered/Not Resolved]

NARRATIVE: CASE EVENT DATE: 20211213
